FAERS Safety Report 4826147-3 (Version None)
Quarter: 2005Q4

REPORT INFORMATION
  Report Type: 
  Country: None (occurrence: None)
  Receive Date: 20051111
  Receipt Date: 19981110
  Transmission Date: 20060501
  Serious: Yes (Hospitalization)
  Sender: FDA-Public Use
  Company Number: M089934

PATIENT
  Age: 51 Year
  Sex: Male

DRUGS (12)
  1. ZERIT [Suspect]
     Indication: HIV INFECTION
     Route: 048
     Dates: start: 19980101
  2. VIDEX [Suspect]
     Indication: HIV INFECTION
     Route: 048
     Dates: start: 19980101
  3. NELFINAVIR [Suspect]
     Indication: HIV INFECTION
     Route: 048
  4. BIAXIN [Concomitant]
     Route: 048
  5. BACTRIM DS [Concomitant]
     Route: 048
  6. ACYCLOVIR [Concomitant]
  7. DIFLUCAN [Concomitant]
  8. TESTOSTERONE [Concomitant]
  9. MARINOL [Concomitant]
     Route: 048
  10. VOLTAREN [Concomitant]
     Route: 048
  11. PRILOSEC [Concomitant]
     Route: 048
  12. VIAGRA [Concomitant]
     Route: 048

REACTIONS (1)
  - MYOCARDIAL INFARCTION [None]
